FAERS Safety Report 6632080-7 (Version None)
Quarter: 2010Q1

REPORT INFORMATION
  Report Type: 
  Country: None (occurrence: None)
  Receive Date: 20100312
  Receipt Date: 20090615
  Transmission Date: 20100710
  Serious: No
  Sender: FDA-Public Use
  Company Number: US-BIOGENIDEC-2009BI018224

PATIENT
  Age: 54 Year
  Sex: Male

DRUGS (4)
  1. AVONEX [Suspect]
     Indication: MULTIPLE SCLEROSIS
     Route: 030
     Dates: start: 20081005, end: 20081011
  2. AVONEX [Suspect]
     Route: 030
     Dates: start: 20081001, end: 20081001
  3. AVONEX [Suspect]
     Route: 030
     Dates: start: 20081001, end: 20081001
  4. AVONEX [Suspect]
     Route: 030
     Dates: start: 20081025

REACTIONS (2)
  - INJECTION SITE HAEMORRHAGE [None]
  - VENOUS INJURY [None]
